FAERS Safety Report 25178552 (Version 1)
Quarter: 2025Q2

REPORT INFORMATION
  Report Type: Spontaneous
  Country: TW (occurrence: TW)
  Receive Date: 20250409
  Receipt Date: 20250409
  Transmission Date: 20250717
  Serious: Yes (Death, Life-Threatening, Hospitalization)
  Sender: PADAGIS
  Company Number: TW-PADAGIS-2025PAD00388

PATIENT

DRUGS (2)
  1. CYCLOSPORINE [Suspect]
     Active Substance: CYCLOSPORINE
     Indication: Aplasia pure red cell
     Route: 065
  2. THYMOCYTE IMMUNE GLOBULIN NOS [Suspect]
     Active Substance: THYMOCYTE IMMUNE GLOBULIN NOS
     Indication: Aplasia pure red cell
     Route: 065

REACTIONS (6)
  - Organ failure [Fatal]
  - Acidosis [Fatal]
  - Pneumonia [Unknown]
  - Trichophytosis [Recovering/Resolving]
  - Dermatophytosis [Recovering/Resolving]
  - Product use in unapproved indication [Unknown]
